FAERS Safety Report 7388789-3 (Version None)
Quarter: 2011Q1

REPORT INFORMATION
  Report Type: 
  Country: None (occurrence: None)
  Receive Date: 20110329
  Receipt Date: 20110329
  Transmission Date: 20110831
  Serious: Yes (Hospitalization, Disabling, Other)
  Sender: FDA-Public Use
  Company Number: None

PATIENT
  Age: 51 Year
  Sex: Female
  Weight: 79.5 kg

DRUGS (2)
  1. YASMIN [Suspect]
     Indication: MENORRHAGIA
     Dosage: DAILY ORALLY
     Route: 048
     Dates: start: 20050601, end: 20051130
  2. YASMIN [Suspect]
     Indication: ANAEMIA
     Dosage: DAILY ORALLY
     Route: 048
     Dates: start: 20050601, end: 20051130

REACTIONS (12)
  - CYSTITIS INTERSTITIAL [None]
  - DYSPNOEA [None]
  - ASTHENIA [None]
  - PAIN IN EXTREMITY [None]
  - HEARING IMPAIRED [None]
  - PELVIC PAIN [None]
  - ALOPECIA [None]
  - METAMORPHOPSIA [None]
  - GAIT DISTURBANCE [None]
  - FATIGUE [None]
  - DIZZINESS [None]
  - HEADACHE [None]
